FAERS Safety Report 22156500 (Version 1)
Quarter: 2023Q1

REPORT INFORMATION
  Report Type: Spontaneous
  Country: US (occurrence: US)
  Receive Date: 20230330
  Receipt Date: 20230330
  Transmission Date: 20230417
  Serious: Yes (Other)
  Sender: FDA-Public Use
  Company Number: US-CTI BIOPHARMA-2023US03475

PATIENT

DRUGS (6)
  1. VONJO [Suspect]
     Active Substance: PACRITINIB
     Indication: Myelofibrosis
     Dosage: 200 MG, BID
     Route: 048
     Dates: start: 202301
  2. AMLODIPINE BESYLATE\BENAZEPRIL HYDROCHLORIDE [Concomitant]
     Active Substance: AMLODIPINE BESYLATE\BENAZEPRIL HYDROCHLORIDE
  3. AMOXICILLIN [Concomitant]
     Active Substance: AMOXICILLIN
  4. CENTRUM SILVER [ASCORBIC ACID;BETACAROTENE;BIOTIN;CALCIUM;CHROMIUM;COL [Concomitant]
  5. PRAVASTATIN SODIUM [Concomitant]
     Active Substance: PRAVASTATIN SODIUM
  6. CEPHALEXIN [Concomitant]
     Active Substance: CEPHALEXIN

REACTIONS (1)
  - Raynaud^s phenomenon [Unknown]

NARRATIVE: CASE EVENT DATE: 20230301
